FAERS Safety Report 5021455-8 (Version None)
Quarter: 2006Q2

REPORT INFORMATION
  Report Type: 
  Country: None (occurrence: None)
  Receive Date: 20060605
  Receipt Date: 20060519
  Transmission Date: 20061013
  Serious: Yes (Hospitalization)
  Sender: FDA-Public Use
  Company Number: 225170

PATIENT
  Age: 59 Year
  Sex: Female

DRUGS (3)
  1. RITUXAN [Suspect]
     Dosage: SEE IMAGE
     Dates: start: 20050530
  2. RITUXAN [Suspect]
     Dosage: SEE IMAGE
     Dates: start: 20051201
  3. RITUXAN [Suspect]
     Dosage: SEE IMAGE
     Dates: start: 20060201

REACTIONS (8)
  - CHILLS [None]
  - DEPRESSED LEVEL OF CONSCIOUSNESS [None]
  - DISEASE PROGRESSION [None]
  - FEELING ABNORMAL [None]
  - HYPOGLYCAEMIA [None]
  - PYREXIA [None]
  - THERAPY NON-RESPONDER [None]
  - TUMOUR LYSIS SYNDROME [None]
